FAERS Safety Report 7530791-2 (Version None)
Quarter: 2011Q2

REPORT INFORMATION
  Report Type: 
  Country: None (occurrence: None)
  Receive Date: 20110607
  Receipt Date: 20060223
  Transmission Date: 20111010
  Serious: Yes (Death)
  Sender: FDA-Public Use
  Company Number: US-GENENTECH-319896

PATIENT
  Sex: Female

DRUGS (1)
  1. XOLAIR [Suspect]

REACTIONS (4)
  - DYSPNOEA [None]
  - CARDIAC ARREST [None]
  - CYANOSIS [None]
  - CARDIO-RESPIRATORY ARREST [None]
